FAERS Safety Report 9834597 (Version 2)
Quarter: 2014Q1

REPORT INFORMATION
  Report Type: Spontaneous
  Country: US (occurrence: US)
  Receive Date: 20140122
  Receipt Date: 20140314
  Transmission Date: 20141002
  Serious: No
  Sender: FDA-Public Use
  Company Number: US-VERTEX PHARMACEUTICALS INC-2014-000249

PATIENT
  Age: 64 Year
  Sex: Female
  Weight: 75 kg

DRUGS (5)
  1. INCIVEK [Suspect]
     Indication: HEPATITIS C
     Dosage: 750 MG, TID
     Route: 048
     Dates: start: 20131005, end: 20131203
  2. RIBAVIRIN [Suspect]
     Indication: HEPATITIS C
     Dosage: 3 DF AM, 1 DF PM
     Route: 048
     Dates: start: 20131005
  3. RIBAVIRIN [Suspect]
     Dosage: 3 DF AM, 2 DF PM
     Route: 048
     Dates: end: 20140114
  4. PEGASYS [Concomitant]
     Indication: HEPATITIS C
     Dosage: 180 ?G, QW
     Route: 058
     Dates: start: 20131004, end: 20131231
  5. PEGASYS [Concomitant]
     Dosage: 135 ?G, QW
     Route: 058
     Dates: start: 20140101, end: 20140114

REACTIONS (3)
  - Rash pruritic [Recovering/Resolving]
  - Platelet count decreased [Not Recovered/Not Resolved]
  - Drug ineffective [Not Recovered/Not Resolved]
